FAERS Safety Report 14239897 (Version 1)
Quarter: 2017Q4

REPORT INFORMATION
  Report Type: Spontaneous
  Country: DO (occurrence: DO)
  Receive Date: 20171130
  Receipt Date: 20171130
  Transmission Date: 20180321
  Serious: Yes (Other)
  Sender: FDA-Public Use
  Company Number: DO-EMD SERONO-8206484

PATIENT
  Sex: Female

DRUGS (1)
  1. REBIF [Suspect]
     Active Substance: INTERFERON BETA-1A
     Indication: PRODUCT USED FOR UNKNOWN INDICATION
     Dates: start: 2014, end: 2017

REACTIONS (3)
  - Hyperaesthesia [Unknown]
  - Scar [Unknown]
  - Injection site abscess [Unknown]

NARRATIVE: CASE EVENT DATE: 2017
